FAERS Safety Report 8861221 (Version 3)
Quarter: 2013Q1

REPORT INFORMATION
  Report Type: Report from Study
  Country: US (occurrence: US)
  Receive Date: 20121026
  Receipt Date: 20130220
  Transmission Date: 20140127
  Serious: Yes (Hospitalization, Other)
  Sender: FDA-Public Use
  Company Number: US-GENZYME-CAMP-1002473

PATIENT
  Age: 51 Year
  Sex: Female

DRUGS (17)
  1. CAMPATH [Suspect]
     Indication: ACUTE LYMPHOCYTIC LEUKAEMIA
     Dosage: UNK (30/1 ML)(FIRST COURSE)
     Route: 042
     Dates: start: 20120123
  2. CAMPATH [Suspect]
     Dosage: 100 MG, (30/1)QD (FIFTH COURSE)
     Route: 042
     Dates: start: 20120501
  3. FLUDARA [Suspect]
     Indication: ACUTE LYMPHOCYTIC LEUKAEMIA
     Dosage: UNK (FIRST COURSE)
     Route: 042
     Dates: start: 20120123
  4. FLUDARA [Suspect]
     Dosage: 355 MG, QD (FIFTH COURSE)
     Route: 042
     Dates: start: 20120501
  5. DASATINIB [Suspect]
     Indication: ACUTE LYMPHOCYTIC LEUKAEMIA
     Dosage: UNK (FIRST COURSE)
     Route: 048
     Dates: start: 20120123
  6. DASATINIB [Suspect]
     Dosage: UNK
     Route: 048
     Dates: start: 20120426, end: 20121108
  7. MELPHALAN [Suspect]
     Indication: ACUTE LYMPHOCYTIC LEUKAEMIA
     Dosage: UNK (FIRST COURSE)
     Route: 042
     Dates: start: 20120123
  8. MELPHALAN [Suspect]
     Dosage: 333 MG, QD (FIFTH COURSE)
     Route: 042
     Dates: start: 20120502
  9. TACROLIMUS [Suspect]
     Indication: PRODUCT USED FOR UNKNOWN INDICATION
     Dosage: UNK
     Route: 065
  10. BENZODIAZIPINE [Suspect]
     Indication: PRODUCT USED FOR UNKNOWN INDICATION
     Dosage: UNK
     Route: 065
  11. DAUNORUBICIN [Suspect]
     Indication: ACUTE LYMPHOCYTIC LEUKAEMIA
     Route: 042
  12. CYCLOPHOSPHAMIDE [Suspect]
     Indication: ACUTE LYMPHOCYTIC LEUKAEMIA
     Dosage: UNK
     Route: 065
  13. DEXAMETHASONE [Suspect]
     Indication: ACUTE LYMPHOCYTIC LEUKAEMIA
     Dosage: UNK
     Route: 048
  14. VINCRISTINE [Suspect]
     Indication: ACUTE LYMPHOCYTIC LEUKAEMIA
     Dosage: UNK
     Route: 042
  15. METHOTREXATE [Suspect]
     Indication: ACUTE LYMPHOCYTIC LEUKAEMIA
     Dosage: UNK
     Route: 042
  16. MERCAPTOPURINE [Suspect]
     Indication: ACUTE LYMPHOCYTIC LEUKAEMIA
     Dosage: UNK
     Route: 065
  17. METHYLPREDNISOLONE [Concomitant]
     Indication: PRODUCT USED FOR UNKNOWN INDICATION
     Dosage: UNK
     Route: 065

REACTIONS (10)
  - Hypophagia [Unknown]
  - Microangiopathic haemolytic anaemia [Unknown]
  - Renal failure acute [Unknown]
  - Muscular weakness [Not Recovered/Not Resolved]
  - Renal failure [Not Recovered/Not Resolved]
  - Hypokalaemia [Unknown]
  - Clostridium difficile colitis [Not Recovered/Not Resolved]
  - Pancytopenia [Not Recovered/Not Resolved]
  - Nausea [Not Recovered/Not Resolved]
  - Hallucinations, mixed [Recovered/Resolved]
